FAERS Safety Report 24796681 (Version 12)
Quarter: 2025Q4

REPORT INFORMATION
  Report Type: Report from Study
  Country: US (occurrence: US)
  Receive Date: 20250101
  Receipt Date: 20251010
  Transmission Date: 20260117
  Serious: Yes (Other)
  Sender: OTSUKA
  Company Number: US-OTSUKA-2024_030977

PATIENT
  Age: 58 Year
  Sex: Female
  Weight: 63.5 kg

DRUGS (17)
  1. TOLVAPTAN [Suspect]
     Active Substance: TOLVAPTAN
     Indication: Congenital cystic kidney disease
     Dosage: 45 MG, QD (IN THE MORNING)
     Dates: start: 20241028
  2. TOLVAPTAN [Suspect]
     Active Substance: TOLVAPTAN
     Dosage: 15 MG, QD (8 HR LATER)
     Dates: start: 20241028
  3. TOLVAPTAN [Suspect]
     Active Substance: TOLVAPTAN
     Dosage: 30 MG
     Route: 065
  4. TOLVAPTAN [Suspect]
     Active Substance: TOLVAPTAN
     Dosage: 15 MG
     Route: 065
  5. TOLVAPTAN [Suspect]
     Active Substance: TOLVAPTAN
     Dosage: 45 MG, QD (AM)
     Dates: start: 20241121, end: 20241224
  6. TOLVAPTAN [Suspect]
     Active Substance: TOLVAPTAN
     Dosage: 15 MG, QD (PM)
     Dates: start: 20241121, end: 20241224
  7. TOLVAPTAN [Suspect]
     Active Substance: TOLVAPTAN
     Dosage: 45 MG, QD (ONE 30 MG TABLET AND ONE 15 MG TABLET EVERY MORNING)
     Dates: start: 20250210, end: 20250921
  8. TOLVAPTAN [Suspect]
     Active Substance: TOLVAPTAN
     Dosage: UNK
     Route: 065
  9. AUGMENTIN [Suspect]
     Active Substance: AMOXICILLIN\CLAVULANATE POTASSIUM
     Indication: Sinusitis
     Dosage: UNK
     Route: 065
  10. WELLBUTRIN SR [Concomitant]
     Active Substance: BUPROPION HYDROCHLORIDE
     Indication: Product used for unknown indication
     Dosage: 1 DF, BID (SR)
  11. VAGIFEM [Concomitant]
     Active Substance: ESTRADIOL
     Indication: Product used for unknown indication
     Dosage: 1 DF, (2-3 TIMES A WEEK)
  12. FLONASE [Concomitant]
     Active Substance: FLUTICASONE PROPIONATE
     Indication: Product used for unknown indication
     Dosage: 2 DF, DAILY (2 SPRAYS NASALLY)
  13. BREOELLIPTA [Concomitant]
     Indication: Product used for unknown indication
     Dosage: 1 DF, DAILY (200-25 MCG/DOSE INHALATION BLISTER WITH DEVICE)
     Dates: start: 20240610
  14. COMBIVENT RESPIMAT [Concomitant]
     Active Substance: ALBUTEROL SULFATE\IPRATROPIUM BROMIDE
     Indication: Product used for unknown indication
     Dosage: 1 DF, QID (20-100 MCG/ACTUATION INHALATION MIST)
     Dates: start: 20240620
  15. NICODERM CQ [Concomitant]
     Active Substance: NICOTINE
     Indication: Product used for unknown indication
     Dosage: 1 DF, DAILY (21 MG/24 HR PATCH 24 HOURS)
     Dates: start: 20250227, end: 20250227
  16. PAXIL [Concomitant]
     Active Substance: PAROXETINE HYDROCHLORIDE
     Indication: Product used for unknown indication
     Dosage: 1 DF, QD (EVERY MORNING)
     Dates: start: 20241022
  17. FOSAMAX [Concomitant]
     Active Substance: ALENDRONATE SODIUM
     Indication: Osteoporosis
     Dosage: UNK
     Route: 065

REACTIONS (41)
  - Hypersensitivity vasculitis [Unknown]
  - Syncope [Not Recovered/Not Resolved]
  - Bacterial test positive [Unknown]
  - Urinary sediment present [Unknown]
  - White blood cells urine positive [Unknown]
  - Feeling abnormal [Not Recovered/Not Resolved]
  - Respiratory tract congestion [Not Recovered/Not Resolved]
  - Sinus congestion [Not Recovered/Not Resolved]
  - Haematocrit increased [Unknown]
  - Chronic obstructive pulmonary disease [Unknown]
  - Fungal foot infection [Not Recovered/Not Resolved]
  - Blood calcium increased [Not Recovered/Not Resolved]
  - Oropharyngeal pain [Not Recovered/Not Resolved]
  - Gastrointestinal disorder [Unknown]
  - Fungal infection [Unknown]
  - Sinusitis [Unknown]
  - Back pain [Not Recovered/Not Resolved]
  - Viral infection [Unknown]
  - Cough [Not Recovered/Not Resolved]
  - Malaise [Not Recovered/Not Resolved]
  - Blood urea increased [Recovered/Resolved]
  - Blood urea increased [Recovered/Resolved]
  - Renal pain [Not Recovered/Not Resolved]
  - Depression [Unknown]
  - Blood creatinine increased [Recovered/Resolved]
  - Glomerular filtration rate decreased [Recovered/Resolved]
  - Glomerular filtration rate decreased [Not Recovered/Not Resolved]
  - Blood potassium increased [Recovered/Resolved]
  - Muscle spasms [Not Recovered/Not Resolved]
  - Blood glucose increased [Recovered/Resolved]
  - Abdominal pain [Not Recovered/Not Resolved]
  - Asthenia [Not Recovered/Not Resolved]
  - Dyspepsia [Unknown]
  - Headache [Not Recovered/Not Resolved]
  - Decreased appetite [Not Recovered/Not Resolved]
  - Dizziness [Not Recovered/Not Resolved]
  - Thirst [Not Recovered/Not Resolved]
  - Polyuria [Not Recovered/Not Resolved]
  - Pollakiuria [Not Recovered/Not Resolved]
  - Incorrect dose administered [Unknown]
  - Product dose omission issue [Unknown]

NARRATIVE: CASE EVENT DATE: 20241110
